FAERS Safety Report 19756010 (Version 2)
Quarter: 2022Q1

REPORT INFORMATION
  Report Type: Report from Study
  Country: US (occurrence: US)
  Receive Date: 20210828
  Receipt Date: 20220114
  Transmission Date: 20220423
  Serious: Yes (Other)
  Sender: FDA-Public Use
  Company Number: US-REGENERON PHARMACEUTICALS, INC.-2021-78967

PATIENT
  Age: 13 Year
  Sex: Male

DRUGS (4)
  1. CASIRIVIMAB\IMDEVIMAB [Suspect]
     Active Substance: CASIRIVIMAB\IMDEVIMAB
     Indication: COVID-19
     Dosage: 1200 MG, SINGLE
     Route: 042
     Dates: start: 20210808, end: 20210808
  2. BENADRYL                           /00000402/ [Concomitant]
     Indication: Urticaria
     Dosage: UNK, SINGLE
     Route: 065
     Dates: start: 20210810, end: 20210810
  3. BENADRYL                           /00000402/ [Concomitant]
     Dosage: UNK, AS NECESSARY
     Route: 065
  4. ALLEGRA [Concomitant]
     Active Substance: FEXOFENADINE HYDROCHLORIDE
     Indication: Urticaria
     Dosage: UNK, QD
     Route: 065

REACTIONS (2)
  - Urticaria [Recovered/Resolved]
  - Lip swelling [Unknown]

NARRATIVE: CASE EVENT DATE: 20210810
